FAERS Safety Report 12130073 (Version 1)
Quarter: 2016Q1

REPORT INFORMATION
  Report Type: Other
  Country: US (occurrence: US)
  Receive Date: 20160229
  Receipt Date: 20160229
  Transmission Date: 20160526
  Serious: No
  Sender: FDA-Public Use
  Company Number: US-ACORDA-ACO_23592_2010

PATIENT
  Age: 64 Year
  Sex: Male
  Weight: 90 kg

DRUGS (3)
  1. AMPYRA [Suspect]
     Active Substance: DALFAMPRIDINE
     Indication: GAIT DISTURBANCE
     Dosage: 10 MG, BID
     Route: 048
     Dates: start: 2010, end: 2010
  2. REBIF [Concomitant]
     Active Substance: INTERFERON BETA-1A
     Indication: DIABETES MELLITUS
     Dosage: DF
  3. AMPYRA [Suspect]
     Active Substance: DALFAMPRIDINE
     Dosage: HALF A TABLET EVERY 12 HOURS
     Route: 048
     Dates: start: 2010

REACTIONS (3)
  - Tremor [Recovered/Resolved]
  - Feeling abnormal [Unknown]
  - Inappropriate schedule of drug administration [Recovered/Resolved]

NARRATIVE: CASE EVENT DATE: 2010
